FAERS Safety Report 5742858-X (Version None)
Quarter: 2008Q2

REPORT INFORMATION
  Report Type: 
  Country: None (occurrence: None)
  Receive Date: 20080519
  Receipt Date: 20080512
  Transmission Date: 20081010
  Serious: Yes (Other)
  Sender: FDA-Public Use
  Company Number: GB-JNJFOC-20080502659

PATIENT
  Age: 79 Year
  Sex: Female

DRUGS (4)
  1. GALANTAMINE [Suspect]
     Indication: DEMENTIA
     Route: 048
  2. RISPERIDONE [Concomitant]
  3. ASPIRIN [Concomitant]
  4. TRAZODONE HCL [Concomitant]

REACTIONS (2)
  - NODAL RHYTHM [None]
  - SYNCOPE [None]
